FAERS Safety Report 23550478 (Version 2)
Quarter: 2024Q2

REPORT INFORMATION
  Report Type: Spontaneous
  Country: US (occurrence: US)
  Receive Date: 20240221
  Receipt Date: 20240402
  Transmission Date: 20240716
  Serious: No
  Sender: FDA-Public Use
  Company Number: US-BRISTOL-MYERS SQUIBB COMPANY-2024-027745

PATIENT
  Age: 66 Year
  Sex: Male
  Weight: 96.6 kg

DRUGS (3)
  1. REVLIMID [Suspect]
     Active Substance: LENALIDOMIDE
     Indication: Plasma cell myeloma
     Route: 048
     Dates: start: 20240212
  2. DARZALEX [Concomitant]
     Active Substance: DARATUMUMAB
     Indication: Product used for unknown indication
     Dates: start: 202401
  3. VELCADE [Concomitant]
     Active Substance: BORTEZOMIB
     Indication: Product used for unknown indication
     Dates: start: 202401

REACTIONS (2)
  - Off label use [Unknown]
  - Peripheral swelling [Recovered/Resolved]
